FAERS Safety Report 6930879-0 (Version None)
Quarter: 2010Q3

REPORT INFORMATION
  Report Type: 
  Country: None (occurrence: None)
  Receive Date: 20100818
  Receipt Date: 20100729
  Transmission Date: 20110219
  Serious: Yes (Hospitalization)
  Sender: FDA-Public Use
  Company Number: US-BAYER-201021255NA

PATIENT
  Age: 33 Year
  Sex: Female
  Weight: 53 kg

DRUGS (3)
  1. YAZ [Suspect]
     Indication: CONTRACEPTION
     Route: 048
     Dates: start: 20080101, end: 20091101
  2. TOPOMAX/IMITREX [Concomitant]
     Route: 065
     Dates: start: 20090101, end: 20100101
  3. IBUPROFEN [Concomitant]
     Route: 065
     Dates: start: 20070101, end: 20100101

REACTIONS (1)
  - CHOLELITHIASIS [None]
